FAERS Safety Report 16719828 (Version 2)
Quarter: 2019Q3

REPORT INFORMATION
  Report Type: Spontaneous
  Country: US (occurrence: US)
  Receive Date: 20190820
  Receipt Date: 20190916
  Transmission Date: 20191005
  Serious: No
  Sender: FDA-Public Use
  Company Number: US-PFIZER INC-2019351550

PATIENT
  Age: 55 Year
  Sex: Female
  Weight: 72 kg

DRUGS (2)
  1. XELJANZ XR [Suspect]
     Active Substance: TOFACITINIB CITRATE
     Indication: RHEUMATOID ARTHRITIS
     Dosage: 11 MG, 1X/DAY
     Route: 048
  2. KEVZARA [Concomitant]
     Active Substance: SARILUMAB
     Dosage: UNK

REACTIONS (3)
  - Swelling [Unknown]
  - Pruritus [Unknown]
  - Erythema [Unknown]
